FAERS Safety Report 17846517 (Version 1)
Quarter: 2020Q2

REPORT INFORMATION
  Report Type: Spontaneous
  Country: CA (occurrence: CA)
  Receive Date: 20200601
  Receipt Date: 20200601
  Transmission Date: 20200714
  Serious: Yes (Other)
  Sender: FDA-Public Use
  Company Number: CA-TEVA-2020-CA-1241537

PATIENT
  Age: 69 Year
  Sex: Female
  Weight: 64 kg

DRUGS (12)
  1. ERGOCALCIFEROL. [Concomitant]
     Active Substance: ERGOCALCIFEROL
  2. SYMBICORT [Concomitant]
     Active Substance: BUDESONIDE\FORMOTEROL FUMARATE DIHYDRATE
  3. CALCIUM [Concomitant]
     Active Substance: CALCIUM
  4. FAMOTIDINE. [Concomitant]
     Active Substance: FAMOTIDINE
  5. MAGNESIUM [Concomitant]
     Active Substance: MAGNESIUM
  6. HYDROMORPHONE [Concomitant]
     Active Substance: HYDROMORPHONE
  7. MELOXICAM. [Concomitant]
     Active Substance: MELOXICAM
  8. MELATONIN [Concomitant]
     Active Substance: MELATONIN
  9. PACLITAXEL. [Suspect]
     Active Substance: PACLITAXEL
     Indication: BREAST CANCER
     Route: 042
  10. ZOPICLONE [Concomitant]
     Active Substance: ZOPICLONE
  11. DOCUSATE SODIUM. [Concomitant]
     Active Substance: DOCUSATE SODIUM
  12. PANTOPRAZOLE [Concomitant]
     Active Substance: PANTOPRAZOLE

REACTIONS (4)
  - Erythema [Not Recovered/Not Resolved]
  - Paraesthesia oral [Not Recovered/Not Resolved]
  - Pharyngeal paraesthesia [Not Recovered/Not Resolved]
  - Lip swelling [Not Recovered/Not Resolved]
